FAERS Safety Report 13413851 (Version 3)
Quarter: 2020Q1

REPORT INFORMATION
  Report Type: Spontaneous
  Country: US (occurrence: US)
  Receive Date: 20170406
  Receipt Date: 20200121
  Transmission Date: 20200409
  Serious: No
  Sender: FDA-Public Use
  Company Number: US-JNJFOC-20170318341

PATIENT
  Sex: Male

DRUGS (21)
  1. RISPERDAL [Suspect]
     Active Substance: RISPERIDONE
     Dosage: 2MG, AM AND 3 MG AT NIGHT
     Route: 048
     Dates: start: 20070531
  2. RISPERDAL [Suspect]
     Active Substance: RISPERIDONE
     Route: 048
     Dates: start: 20100211, end: 20100213
  3. RISPERDAL [Suspect]
     Active Substance: RISPERIDONE
     Route: 048
     Dates: start: 20130603
  4. RISPERIDONE. [Suspect]
     Active Substance: RISPERIDONE
     Route: 065
     Dates: start: 20090220, end: 20090307
  5. RISPERDAL [Suspect]
     Active Substance: RISPERIDONE
     Route: 048
     Dates: start: 20100123, end: 20100201
  6. RISPERIDONE. [Suspect]
     Active Substance: RISPERIDONE
     Route: 065
  7. RISPERIDONE. [Suspect]
     Active Substance: RISPERIDONE
     Route: 065
     Dates: start: 20150330
  8. RISPERDAL [Suspect]
     Active Substance: RISPERIDONE
     Route: 048
     Dates: start: 20150424
  9. RISPERIDONE. [Suspect]
     Active Substance: RISPERIDONE
     Route: 065
     Dates: start: 20120301
  10. RISPERDAL [Suspect]
     Active Substance: RISPERIDONE
     Indication: SCHIZOPHRENIA
     Dosage: 2 AND 3 MG
     Route: 048
     Dates: start: 20130603
  11. RISPERDAL [Suspect]
     Active Substance: RISPERIDONE
     Indication: SCHIZOPHRENIA
     Route: 048
     Dates: start: 20070526
  12. RISPERDAL [Suspect]
     Active Substance: RISPERIDONE
     Route: 048
     Dates: start: 20081111
  13. RISPERDAL [Suspect]
     Active Substance: RISPERIDONE
     Route: 048
     Dates: start: 20120226
  14. RISPERDAL [Suspect]
     Active Substance: RISPERIDONE
     Dosage: 2MG, AM AND 3 MG AT NIGHT
     Route: 048
     Dates: start: 20090220, end: 20090310
  15. RISPERDAL [Suspect]
     Active Substance: RISPERIDONE
     Route: 048
     Dates: start: 20120301, end: 20120305
  16. RISPERDAL [Suspect]
     Active Substance: RISPERIDONE
     Route: 048
     Dates: start: 20150330, end: 20150804
  17. RISPERDAL M-TAB [Suspect]
     Active Substance: RISPERIDONE
     Indication: SCHIZOPHRENIA
     Dosage: VARYING DOSES OF 2 AND 3 MG
     Route: 048
     Dates: start: 20100211
  18. RISPERDAL [Suspect]
     Active Substance: RISPERIDONE
     Route: 048
     Dates: start: 20070527
  19. RISPERIDONE. [Suspect]
     Active Substance: RISPERIDONE
     Route: 065
     Dates: start: 20130603
  20. RISPERDAL [Suspect]
     Active Substance: RISPERIDONE
     Route: 048
     Dates: start: 20150804
  21. RISPERIDONE. [Suspect]
     Active Substance: RISPERIDONE
     Indication: SCHIZOPHRENIA
     Route: 048
     Dates: start: 20081111

REACTIONS (2)
  - Emotional distress [Unknown]
  - Gynaecomastia [Unknown]
